FAERS Safety Report 19061328 (Version 1)
Quarter: 2021Q1

REPORT INFORMATION
  Report Type: Spontaneous
  Country: FR (occurrence: FR)
  Receive Date: 20210326
  Receipt Date: 20210326
  Transmission Date: 20210420
  Serious: Yes (Other)
  Sender: FDA-Public Use
  Company Number: NVSC2021FR058576

PATIENT
  Age: 64 Year
  Sex: Male
  Weight: 86 kg

DRUGS (6)
  1. NICOPASS [Suspect]
     Active Substance: NICOTINE
     Indication: TOBACCO POISONING
     Dosage: 1 DF, 4W
     Route: 048
     Dates: start: 20200304
  2. INNOVAIR [Suspect]
     Active Substance: BECLOMETHASONE DIPROPIONATE\FORMOTEROL
     Indication: INCREASED BRONCHIAL SECRETION
     Dosage: 2 DF, QD
     Route: 055
     Dates: start: 20201120
  3. TECENTRIQ [Suspect]
     Active Substance: ATEZOLIZUMAB
     Indication: SQUAMOUS CELL CARCINOMA OF LUNG
     Dosage: 1200 MG, Q3W
     Route: 042
     Dates: start: 20200820, end: 20210121
  4. SPIRIVA [Suspect]
     Active Substance: TIOTROPIUM BROMIDE MONOHYDRATE
     Indication: INCREASED BRONCHIAL SECRETION
     Dosage: 2 DF, QD (2 BOUFF?ES UNE FOIS PAR JOUR)
     Route: 055
     Dates: start: 20201120
  5. PRAZEPAM [Suspect]
     Active Substance: PRAZEPAM
     Indication: PRODUCT USED FOR UNKNOWN INDICATION
     Dosage: 10 MG, QD
     Route: 048
     Dates: start: 20200513
  6. ALPRAZOLAM. [Suspect]
     Active Substance: ALPRAZOLAM
     Indication: PRODUCT USED FOR UNKNOWN INDICATION
     Dosage: 0.5 MG, QD
     Route: 048
     Dates: start: 20200603

REACTIONS (1)
  - Polymyalgia rheumatica [Not Recovered/Not Resolved]

NARRATIVE: CASE EVENT DATE: 202101
